FAERS Safety Report 4759179-4 (Version None)
Quarter: 2005Q3

REPORT INFORMATION
  Report Type: 
  Country: None (occurrence: None)
  Receive Date: 20050831
  Receipt Date: 20050811
  Transmission Date: 20060218
  Serious: Yes (Death, Other)
  Sender: FDA-Public Use
  Company Number: AU_050808765

PATIENT
  Age: 52 Year
  Sex: Male

DRUGS (7)
  1. XIGRIS [Suspect]
     Dosage: 2.16 MG HOUR
     Dates: start: 20050417, end: 20050418
  2. CEFEPIME [Concomitant]
  3. CIPROFLOXACIN [Concomitant]
  4. NEUPOGEN [Concomitant]
  5. HYDROCORTISONE [Concomitant]
  6. FLUCONAZOLE [Concomitant]
  7. VANCOMYCIN [Concomitant]

REACTIONS (3)
  - DISSEMINATED INTRAVASCULAR COAGULATION [None]
  - MULTI-ORGAN FAILURE [None]
  - THROMBOCYTOPENIA [None]
